FAERS Safety Report 5600772-4 (Version None)
Quarter: 2008Q1

REPORT INFORMATION
  Report Type: 
  Country: None (occurrence: None)
  Receive Date: 20080123
  Receipt Date: 20071115
  Transmission Date: 20080703
  Serious: Yes (Other)
  Sender: FDA-Public Use
  Company Number: US-PFIZER INC-2007096858

PATIENT
  Sex: Female
  Weight: 81.6 kg

DRUGS (7)
  1. LYRICA [Suspect]
     Indication: SCIATICA
     Dates: start: 20070901, end: 20071012
  2. OXYCONTIN [Concomitant]
     Indication: PAIN MANAGEMENT
  3. ZANAFLEX [Concomitant]
  4. CELEBREX [Concomitant]
  5. CYMBALTA [Concomitant]
  6. CADUET [Concomitant]
     Indication: BLOOD PRESSURE
  7. SYNTHROID [Concomitant]

REACTIONS (5)
  - BLOOD PRESSURE INCREASED [None]
  - FALL [None]
  - HYPOAESTHESIA [None]
  - OEDEMA PERIPHERAL [None]
  - UPPER LIMB FRACTURE [None]
